FAERS Safety Report 10150876 (Version 2)
Quarter: 2014Q2

REPORT INFORMATION
  Report Type: Spontaneous
  Country: US (occurrence: US)
  Receive Date: 20140502
  Receipt Date: 20140619
  Transmission Date: 20141212
  Serious: No
  Sender: FDA-Public Use
  Company Number: US-PFIZER INC-2014119239

PATIENT
  Age: 63 Year
  Sex: Female
  Weight: 63.49 kg

DRUGS (3)
  1. ADVIL ALLERGY AND CONGESTION RELIEF [Suspect]
     Dosage: UNK, TWO TIMES A DAY
     Route: 048
     Dates: start: 20140428
  2. ZETIA [Concomitant]
     Indication: BLOOD CHOLESTEROL INCREASED
     Dosage: 10 MG, DAILY
  3. NIASPAN [Concomitant]
     Indication: BLOOD CHOLESTEROL INCREASED
     Dosage: 500 MG, DAILY

REACTIONS (5)
  - Drug ineffective [Unknown]
  - Nasal congestion [Unknown]
  - Paranasal sinus discomfort [Unknown]
  - Nasal congestion [Unknown]
  - Dyspnoea [Unknown]
